FAERS Safety Report 17774310 (Version 2)
Quarter: 2020Q3

REPORT INFORMATION
  Report Type: Report from Study
  Country: None (occurrence: US)
  Receive Date: 20200513
  Receipt Date: 20200708
  Transmission Date: 20201102
  Serious: No
  Sender: FDA-Public Use
  Company Number: US-BIOVITRUM-2019US4546

PATIENT
  Sex: Male

DRUGS (1)
  1. KINERET [Suspect]
     Active Substance: ANAKINRA
     Indication: PRODUCT USED FOR UNKNOWN INDICATION
     Route: 058
     Dates: start: 20190528

REACTIONS (4)
  - Intentional product misuse [Unknown]
  - Product dose omission issue [Unknown]
  - Ear infection [Unknown]
  - Injection site pain [Not Recovered/Not Resolved]
